FAERS Safety Report 8183570-X (Version None)
Quarter: 2012Q1

REPORT INFORMATION
  Report Type: 
  Country: None (occurrence: None)
  Receive Date: 20120305
  Receipt Date: 20120222
  Transmission Date: 20120608
  Serious: No
  Sender: FDA-Public Use
  Company Number: US-JNJFOC-20120212384

PATIENT
  Sex: Male
  Weight: 68.95 kg

DRUGS (11)
  1. CITALOPRAM HYDROBROMIDE [Concomitant]
     Indication: BIPOLAR DISORDER
     Route: 048
     Dates: start: 20080101
  2. TRAZODONE HCL [Concomitant]
     Indication: DEPRESSION
     Route: 048
     Dates: start: 20080101
  3. FENTANYL-100 [Suspect]
     Indication: BACK INJURY
     Route: 062
     Dates: start: 20120222
  4. FENTANYL-100 [Suspect]
     Route: 062
     Dates: start: 20120215, end: 20120219
  5. CITALOPRAM HYDROBROMIDE [Concomitant]
     Indication: DEPRESSION
     Route: 048
     Dates: start: 20080101
  6. GABAPENTIN [Concomitant]
     Indication: PAIN
     Route: 048
     Dates: start: 20080101
  7. FENTANYL-100 [Suspect]
     Indication: INTERVERTEBRAL DISC DEGENERATION
     Route: 062
     Dates: start: 20120215, end: 20120219
  8. TRAZODONE HCL [Concomitant]
     Indication: SLEEP DISORDER
     Route: 048
     Dates: start: 20080101
  9. FENTANYL-100 [Suspect]
     Route: 062
     Dates: start: 20120222
  10. TRAZODONE HCL [Concomitant]
     Indication: BIPOLAR DISORDER
     Route: 048
     Dates: start: 20080101
  11. HYDROCODONE BITARTRATE [Concomitant]
     Indication: PAIN
     Dosage: 10/325 MG
     Route: 048
     Dates: start: 20080101

REACTIONS (1)
  - DRUG DOSE OMISSION [None]
